FAERS Safety Report 11829144 (Version 1)
Quarter: 2015Q4

REPORT INFORMATION
  Report Type: Spontaneous
  Country: US (occurrence: US)
  Receive Date: 20151211
  Receipt Date: 20151211
  Transmission Date: 20160305
  Serious: No
  Sender: FDA-Public Use
  Company Number: US-BAUSCH-BL-2015-011093

PATIENT
  Age: 66 Year
  Sex: Male

DRUGS (2)
  1. XENAZINE [Suspect]
     Active Substance: TETRABENAZINE
     Route: 048
  2. XENAZINE [Suspect]
     Active Substance: TETRABENAZINE
     Indication: HUNTINGTON^S DISEASE
     Route: 048
     Dates: start: 20150317

REACTIONS (7)
  - Drug administration error [Unknown]
  - Urinary incontinence [Unknown]
  - Faecal incontinence [Unknown]
  - Thirst [Unknown]
  - Musculoskeletal stiffness [Not Recovered/Not Resolved]
  - Decreased appetite [Unknown]
  - Movement disorder [Unknown]

NARRATIVE: CASE EVENT DATE: 201505
